FAERS Safety Report 24021038 (Version 1)
Quarter: 2024Q2

REPORT INFORMATION
  Report Type: Spontaneous
  Country: JP (occurrence: JP)
  Receive Date: 20240627
  Receipt Date: 20240627
  Transmission Date: 20240716
  Serious: Yes (Other)
  Sender: FDA-Public Use
  Company Number: JP-REGENERON PHARMACEUTICALS, INC.-2024-088907

PATIENT
  Age: 48 Year
  Sex: Female

DRUGS (1)
  1. LIBTAYO [Suspect]
     Active Substance: CEMIPLIMAB-RWLC
     Indication: Cervix carcinoma recurrent
     Dosage: UNK
     Dates: start: 202405

REACTIONS (3)
  - Metastases to central nervous system [Unknown]
  - Off label use [Unknown]
  - Meningism [Unknown]
